FAERS Safety Report 7286216-8 (Version None)
Quarter: 2011Q1

REPORT INFORMATION
  Report Type: 
  Country: None (occurrence: None)
  Receive Date: 20110131
  Receipt Date: 20110114
  Transmission Date: 20110831
  Serious: Yes (Life-Threatening, Hospitalization)
  Sender: FDA-Public Use
  Company Number: 025822

PATIENT
  Age: 41 Year
  Sex: Male
  Weight: 141 kg

DRUGS (6)
  1. CITALOPRAM [Concomitant]
  2. AMITRIPTYLINE [Concomitant]
  3. CLORAZEPATE DIPOTASSIUM [Concomitant]
  4. LEVETIRACETAM [Suspect]
     Indication: CONVULSION
     Dosage: (1500 MG  BID, GRADUALLY INCREASED)
  5. LAMOTRIGINE [Concomitant]
  6. CARBAMAZEPINE [Concomitant]

REACTIONS (10)
  - PLATELET COUNT DECREASED [None]
  - ECONOMIC PROBLEM [None]
  - FAMILY STRESS [None]
  - GAIT DISTURBANCE [None]
  - VISION BLURRED [None]
  - BLOOD CALCIUM ABNORMAL [None]
  - BLOOD UREA ABNORMAL [None]
  - OVERDOSE [None]
  - DEPRESSION [None]
  - BLOOD CREATININE ABNORMAL [None]
